FAERS Safety Report 18469625 (Version 1)
Quarter: 2020Q4

REPORT INFORMATION
  Report Type: Spontaneous
  Country: FR (occurrence: FR)
  Receive Date: 20201105
  Receipt Date: 20201105
  Transmission Date: 20210114
  Serious: Yes (Hospitalization)
  Sender: FDA-Public Use
  Company Number: FR-ROCHE-2704996

PATIENT
  Age: 77 Year
  Sex: Male
  Weight: 71 kg

DRUGS (3)
  1. DIAZEPAM. [Suspect]
     Active Substance: DIAZEPAM
     Indication: POISONING DELIBERATE
     Route: 048
     Dates: start: 20201008, end: 20201008
  2. IZALGI [Suspect]
     Active Substance: ACETAMINOPHEN\OPIUM
     Indication: POISONING DELIBERATE
     Dosage: 500 MG/25 MG HARD CAPSULES
     Route: 048
     Dates: start: 20201008, end: 20201008
  3. RILMENIDINE [Suspect]
     Active Substance: RILMENIDINE
     Indication: POISONING DELIBERATE
     Route: 048
     Dates: start: 20201008, end: 20201008

REACTIONS (3)
  - Sinus bradycardia [Recovered/Resolved]
  - Acute kidney injury [Recovering/Resolving]
  - Somnolence [Recovered/Resolved]

NARRATIVE: CASE EVENT DATE: 20201008
